FAERS Safety Report 7610120-6 (Version None)
Quarter: 2011Q3

REPORT INFORMATION
  Report Type: 
  Country: None (occurrence: None)
  Receive Date: 20110715
  Receipt Date: 20110707
  Transmission Date: 20111222
  Serious: No
  Sender: FDA-Public Use
  Company Number: US-BIOGENIDEC-2011BI012262

PATIENT
  Sex: Female

DRUGS (1)
  1. TYSABRI [Suspect]
     Indication: MULTIPLE SCLEROSIS
     Route: 042
     Dates: start: 20090427, end: 20110301

REACTIONS (7)
  - MULTIPLE SCLEROSIS [None]
  - CEREBRAL HAEMORRHAGE [None]
  - PAIN IN EXTREMITY [None]
  - LIVER FUNCTION TEST ABNORMAL [None]
  - CYST [None]
  - HEPATIC ENZYME INCREASED [None]
  - HEADACHE [None]
